FAERS Safety Report 5098593-7 (Version None)
Quarter: 2006Q3

REPORT INFORMATION
  Report Type: 
  Country: None (occurrence: None)
  Receive Date: 20060907
  Receipt Date: 20060518
  Transmission Date: 20061208
  Serious: Yes (Hospitalization, Other)
  Sender: FDA-Public Use
  Company Number: PHBS2006JP07614

PATIENT
  Age: 27 Year
  Sex: Male
  Weight: 75 kg

DRUGS (5)
  1. ARTANE [Concomitant]
     Indication: PARKINSONISM
     Dosage: 3 MG/DAY
     Route: 048
     Dates: start: 20051001, end: 20060501
  2. GASMOTIN [Concomitant]
     Indication: GASTRITIS
     Dosage: 1.5 G/DAY
     Route: 048
     Dates: start: 20051001, end: 20060501
  3. TEGRETOL [Suspect]
     Indication: PSYCHOTIC DISORDER
     Dosage: 300 MG/DAY
     Route: 048
     Dates: start: 20051001, end: 20060501
  4. RISPERDAL [Suspect]
     Indication: PSYCHOTIC DISORDER
     Dosage: 3 MG/DAY
     Route: 048
     Dates: start: 20040406, end: 20060501
  5. HYSERENIN [Suspect]
     Indication: PSYCHOTIC DISORDER
     Dosage: 400 MG/DAY
     Route: 048
     Dates: start: 20051001, end: 20060501

REACTIONS (26)
  - ABNORMAL BEHAVIOUR [None]
  - ALANINE AMINOTRANSFERASE DECREASED [None]
  - APLASTIC ANAEMIA [None]
  - ASPARTATE AMINOTRANSFERASE DECREASED [None]
  - BASOPHIL COUNT DECREASED [None]
  - BLOOD GLUCOSE INCREASED [None]
  - BLOOD SODIUM DECREASED [None]
  - BLOOD UREA DECREASED [None]
  - BONE MARROW DISORDER [None]
  - COOMBS DIRECT TEST POSITIVE [None]
  - DIZZINESS [None]
  - DRUG INTERACTION [None]
  - DRUG LEVEL DECREASED [None]
  - HAEMATOCRIT DECREASED [None]
  - HAEMOGLOBIN DECREASED [None]
  - LYMPHOCYTE COUNT INCREASED [None]
  - MALAISE [None]
  - MENTAL DISORDER [None]
  - MONOCYTE COUNT INCREASED [None]
  - NEUTROPHIL COUNT DECREASED [None]
  - PALLOR [None]
  - PANCYTOPENIA [None]
  - PLATELET COUNT DECREASED [None]
  - RED BLOOD CELL COUNT DECREASED [None]
  - SPEECH DISORDER [None]
  - WHITE BLOOD CELL COUNT DECREASED [None]
